FAERS Safety Report 12296909 (Version 1)
Quarter: 2016Q2

REPORT INFORMATION
  Report Type: Spontaneous
  Country: US (occurrence: US)
  Receive Date: 20160422
  Receipt Date: 20160422
  Transmission Date: 20160815
  Serious: Yes (Other)
  Sender: FDA-Public Use
  Company Number: US-APOTEX-2016AP007947

PATIENT
  Age: 34 Year
  Sex: Female

DRUGS (2)
  1. ALLOPURINOL TABLETS USP [Suspect]
     Active Substance: ALLOPURINOL
     Indication: HYPERURICAEMIA
     Dosage: UNK, UNKNOWN
     Route: 065
  2. VALGANCICLOVIR. [Concomitant]
     Active Substance: VALGANCICLOVIR
     Indication: CYTOMEGALOVIRUS COLITIS
     Dosage: UNK, UNKNOWN
     Route: 048

REACTIONS (2)
  - Drug reaction with eosinophilia and systemic symptoms [Recovered/Resolved]
  - Blister [Recovered/Resolved]
